FAERS Safety Report 14790477 (Version 4)
Quarter: 2019Q3

REPORT INFORMATION
  Report Type: Spontaneous
  Country: US (occurrence: US)
  Receive Date: 20180423
  Receipt Date: 20190801
  Transmission Date: 20191004
  Serious: Yes (Other)
  Sender: FDA-Public Use
  Company Number: US-ASTRAZENECA-2018SE48964

PATIENT
  Age: 71 Year
  Sex: Male
  Weight: 86.2 kg

DRUGS (45)
  1. AMOXICILLIN. [Concomitant]
     Active Substance: AMOXICILLIN
     Dates: start: 20150211, end: 20160714
  2. CEFDINIR. [Concomitant]
     Active Substance: CEFDINIR
  3. DIGOXIN. [Concomitant]
     Active Substance: DIGOXIN
  4. METFORMIN [Concomitant]
     Active Substance: METFORMIN HYDROCHLORIDE
  5. PRAVASTATIN SODIUM. [Concomitant]
     Active Substance: PRAVASTATIN SODIUM
  6. PROMETHAZINE [Concomitant]
     Active Substance: PROMETHAZINE HYDROCHLORIDE
  7. CEPHALEXIN. [Concomitant]
     Active Substance: CEPHALEXIN
  8. DILTIAZEM. [Concomitant]
     Active Substance: DILTIAZEM
  9. MONTELUKAST [Concomitant]
     Active Substance: MONTELUKAST SODIUM
  10. NEXIUM [Suspect]
     Active Substance: ESOMEPRAZOLE MAGNESIUM
     Indication: DYSPEPSIA
     Route: 048
     Dates: start: 2008, end: 2017
  11. PROTONIX [Suspect]
     Active Substance: PANTOPRAZOLE SODIUM
     Route: 065
  12. DILTIAZEM. [Concomitant]
     Active Substance: DILTIAZEM
  13. ELIQUIS [Concomitant]
     Active Substance: APIXABAN
  14. LORAZEPAM. [Concomitant]
     Active Substance: LORAZEPAM
  15. MUPIROCIN. [Concomitant]
     Active Substance: MUPIROCIN
  16. TRAZODONE [Concomitant]
     Active Substance: TRAZODONE HYDROCHLORIDE
  17. NEXIUM 24HR [Suspect]
     Active Substance: ESOMEPRAZOLE MAGNESIUM
     Route: 048
  18. PRILOSEC [Suspect]
     Active Substance: OMEPRAZOLE MAGNESIUM
     Route: 048
  19. PREVACID [Suspect]
     Active Substance: LANSOPRAZOLE
     Route: 065
  20. LORAZEPAM. [Concomitant]
     Active Substance: LORAZEPAM
  21. TRAZODONE [Concomitant]
     Active Substance: TRAZODONE HYDROCHLORIDE
  22. ADVAIR HFA [Concomitant]
     Active Substance: FLUTICASONE PROPIONATE\SALMETEROL XINAFOATE
     Dates: start: 20150108, end: 20170123
  23. CARVEDILOL. [Concomitant]
     Active Substance: CARVEDILOL
     Dates: start: 20150804, end: 20170123
  24. CLOPIDOGREL BISULFATE. [Concomitant]
     Active Substance: CLOPIDOGREL BISULFATE
  25. FUROSEMIDE. [Concomitant]
     Active Substance: FUROSEMIDE
  26. INCRUSE ELLIPTA [Concomitant]
     Active Substance: UMECLIDINIUM BROMIDE
  27. NEXIUM [Suspect]
     Active Substance: ESOMEPRAZOLE MAGNESIUM
     Indication: DYSPEPSIA
     Route: 048
  28. CITALOPRAM [Concomitant]
     Active Substance: CITALOPRAM HYDROBROMIDE
  29. EPLERENONE. [Concomitant]
     Active Substance: EPLERENONE
  30. HYDROCODONE [Concomitant]
     Active Substance: HYDROCODONE
  31. NYSTATIN. [Concomitant]
     Active Substance: NYSTATIN
  32. TAMSULOSIN [Concomitant]
     Active Substance: TAMSULOSIN
  33. PRILOSEC OTC [Suspect]
     Active Substance: OMEPRAZOLE MAGNESIUM
     Route: 048
  34. FUROSEMIDE. [Concomitant]
     Active Substance: FUROSEMIDE
  35. FLUTICASONE. [Concomitant]
     Active Substance: FLUTICASONE
  36. SERTRALINE [Concomitant]
     Active Substance: SERTRALINE HYDROCHLORIDE
  37. TRADJENTA [Concomitant]
     Active Substance: LINAGLIPTIN
  38. DEXILANT [Suspect]
     Active Substance: DEXLANSOPRAZOLE
     Route: 065
  39. BENAZEPRIL [Concomitant]
     Active Substance: BENAZEPRIL HYDROCHLORIDE
  40. PREVACID 24 HR [Suspect]
     Active Substance: LANSOPRAZOLE
     Route: 065
  41. ASPIRIN. [Concomitant]
     Active Substance: ASPIRIN
     Dates: start: 20160717, end: 20170123
  42. INDOMETHACIN. [Concomitant]
     Active Substance: INDOMETHACIN
  43. LISINOPRIL. [Concomitant]
     Active Substance: LISINOPRIL
  44. PAROXETINE. [Concomitant]
     Active Substance: PAROXETINE
  45. POTASSIUM CHLORIDE. [Concomitant]
     Active Substance: POTASSIUM CHLORIDE

REACTIONS (5)
  - Chronic kidney disease [Unknown]
  - Tubulointerstitial nephritis [Unknown]
  - Acute kidney injury [Unknown]
  - Renal failure [Not Recovered/Not Resolved]
  - Rebound acid hypersecretion [Unknown]

NARRATIVE: CASE EVENT DATE: 2014
